FAERS Safety Report 16057572 (Version 1)
Quarter: 2019Q1

REPORT INFORMATION
  Report Type: Spontaneous
  Country: US (occurrence: US)
  Receive Date: 20190311
  Receipt Date: 20190311
  Transmission Date: 20190418
  Serious: No
  Sender: FDA-Public Use
  Company Number: US-SA-2019SA062804

PATIENT
  Age: 51 Year
  Sex: Female

DRUGS (6)
  1. KEVZARA [Suspect]
     Active Substance: SARILUMAB
     Route: 058
  2. HUMIRA [Concomitant]
     Active Substance: ADALIMUMAB
  3. CIMZIA [Concomitant]
     Active Substance: CERTOLIZUMAB PEGOL
  4. ENBREL [Concomitant]
     Active Substance: ETANERCEPT
  5. RITUXAN [Concomitant]
     Active Substance: RITUXIMAB
  6. METHOTREXATE. [Concomitant]
     Active Substance: METHOTREXATE
     Dosage: 20 MG, QW

REACTIONS (4)
  - Joint dislocation [Unknown]
  - Joint swelling [Unknown]
  - Arthralgia [Unknown]
  - Condition aggravated [Unknown]
